FAERS Safety Report 7274018-8 (Version None)
Quarter: 2011Q1

REPORT INFORMATION
  Report Type: 
  Country: None (occurrence: None)
  Receive Date: 20110203
  Receipt Date: 20110128
  Transmission Date: 20110831
  Serious: Yes (Hospitalization)
  Sender: FDA-Public Use
  Company Number: US-GILEAD-2011-0035800

PATIENT
  Age: 59 Year
  Sex: Female

DRUGS (10)
  1. LETAIRIS [Suspect]
     Indication: PULMONARY HYPERTENSION
     Route: 048
     Dates: start: 20101230, end: 20110125
  2. ALDACTONE [Concomitant]
  3. OMEPRAZOLE [Concomitant]
  4. MIDODRINE HYDROCHLORIDE [Concomitant]
  5. LASIX [Concomitant]
  6. LISINOPRIL [Concomitant]
  7. LACTULOSE [Concomitant]
  8. INSULIN [Concomitant]
  9. METFORMIN [Concomitant]
  10. LETAIRIS [Suspect]
     Route: 048
     Dates: start: 20101113, end: 20101229

REACTIONS (2)
  - CHYLOTHORAX [None]
  - HEPATIC CIRRHOSIS [None]
